FAERS Safety Report 8566304 (Version 3)
Quarter: 2013Q3

REPORT INFORMATION
  Report Type: Spontaneous
  Country: US (occurrence: US)
  Receive Date: 20120517
  Receipt Date: 20130807
  Transmission Date: 20140515
  Serious: Yes (Hospitalization)
  Sender: FDA-Public Use
  Company Number: US-BAYER-2012-047888

PATIENT
  Age: 31 Year
  Sex: Female
  Weight: 98.41 kg

DRUGS (10)
  1. OCELLA [Suspect]
     Indication: ACNE
     Dosage: UNK
     Dates: start: 2008, end: 2010
  2. YAZ [Suspect]
  3. TYLENOL [Concomitant]
  4. MOTRIN [Concomitant]
  5. METFORMIN ER [Concomitant]
     Dosage: 500 MG, UNK
     Route: 048
  6. NAPROXEN [Concomitant]
     Dosage: 500 MG, UNK
     Route: 048
  7. METHOCARBAMOL [Concomitant]
     Dosage: 750 MG, UNK
     Route: 048
  8. LORAZEPAM [Concomitant]
     Dosage: 1 MG, UNK
     Route: 048
  9. LEXAPRO [Concomitant]
     Dosage: 10 MG, UNK
     Route: 048
  10. ATIVAN [Concomitant]
     Dosage: UNK

REACTIONS (3)
  - Deep vein thrombosis [None]
  - Injury [None]
  - Pain [None]
